FAERS Safety Report 9847117 (Version 2)
Quarter: 2014Q1

REPORT INFORMATION
  Report Type: Spontaneous
  Country: CA (occurrence: CA)
  Receive Date: 20140127
  Receipt Date: 20140217
  Transmission Date: 20141002
  Serious: Yes (Other)
  Sender: FDA-Public Use
  Company Number: CHPA2014US001109

PATIENT
  Age: 77 Year
  Sex: Female

DRUGS (11)
  1. HABITROL 21 MG [Suspect]
     Indication: SMOKING CESSATION THERAPY
     Dosage: 21 MG, QD
     Route: 062
     Dates: start: 20131210
  2. HABITROL 14 MG [Suspect]
     Indication: SMOKING CESSATION THERAPY
     Dosage: 14 MG, QD
     Dates: start: 201401
  3. PRIVATE LABEL [Suspect]
     Indication: SMOKING CESSATION THERAPY
     Dosage: 14 MG, QD
  4. PRIVATE LABEL [Suspect]
     Dosage: 21 MG, UNK
     Route: 062
     Dates: start: 201312
  5. PRIVATE LABEL [Suspect]
     Dosage: UNK, QD
     Route: 062
  6. PRIVATE LABEL [Suspect]
     Dosage: 7 MG, QD
     Route: 062
  7. PRIVATE LABEL [Suspect]
     Dosage: 14 MG, QD
  8. PRIVATE LABEL [Suspect]
     Dosage: 21 MG, QD
     Route: 062
  9. OPRAM [Concomitant]
  10. LEVOTHYROXINE [Concomitant]
     Indication: HYPOTHYROIDISM
     Dosage: 0.75 MG, UNK
  11. LEVOTHYROXINE [Concomitant]
     Indication: BLOOD THYROID STIMULATING HORMONE DECREASED
     Dosage: UNK, QD

REACTIONS (10)
  - Chronic obstructive pulmonary disease [Not Recovered/Not Resolved]
  - Oesophageal disorder [Recovered/Resolved]
  - Blood thyroid stimulating hormone decreased [Not Recovered/Not Resolved]
  - Hypersomnia [Recovering/Resolving]
  - Decreased appetite [Recovering/Resolving]
  - Hunger [Recovering/Resolving]
  - Diarrhoea [Not Recovered/Not Resolved]
  - Cough [Not Recovered/Not Resolved]
  - Nausea [Recovered/Resolved]
  - Incorrect drug administration duration [Unknown]
